FAERS Safety Report 5027325-3 (Version None)
Quarter: 2006Q2

REPORT INFORMATION
  Report Type: 
  Country: None (occurrence: None)
  Receive Date: 20060501
  Receipt Date: 20060214
  Transmission Date: 20061013
  Serious: No
  Sender: FDA-Public Use
  Company Number: 2006PV008737

PATIENT
  Age: 53 Year
  Sex: Male
  Weight: 199.5827 kg

DRUGS (5)
  1. SYMLIN INJECTION (0.6 MG/ML) [Suspect]
     Indication: DIABETES MELLITUS INSULIN-DEPENDENT
     Dosage: 120  MCG; TID; SC;  60 MCG; TID; SC
     Route: 058
     Dates: start: 20050501, end: 20050501
  2. SYMLIN INJECTION (0.6 MG/ML) [Suspect]
     Indication: DIABETES MELLITUS INSULIN-DEPENDENT
     Dosage: 120  MCG; TID; SC;  60 MCG; TID; SC
     Route: 058
     Dates: start: 20050501
  3. ACTOS [Concomitant]
  4. METFORMIN [Concomitant]
  5. LANTUS [Concomitant]

REACTIONS (2)
  - DRUG INEFFECTIVE [None]
  - WEIGHT DECREASED [None]
